FAERS Safety Report 6719172-9 (Version None)
Quarter: 2010Q2

REPORT INFORMATION
  Report Type: 
  Country: None (occurrence: None)
  Receive Date: 20100511
  Receipt Date: 20100511
  Transmission Date: 20101027
  Serious: Yes (Death, Life-Threatening)
  Sender: FDA-Public Use
  Company Number: None

PATIENT
  Age: 15 Month
  Sex: Male
  Weight: 13.6079 kg

DRUGS (3)
  1. TYLENOL INFANT'S DROPS 80MG PER, 8ML MCNEIL [Suspect]
     Indication: DISCOMFORT
     Dosage: EVERY 6 HOURS
     Dates: start: 20100201, end: 20100222
  2. TYLENOL INFANT'S DROPS 80MG PER, 8ML MCNEIL [Suspect]
     Indication: DRUG WITHDRAWAL SYNDROME
     Dosage: EVERY 6 HOURS
     Dates: start: 20100201, end: 20100222
  3. TYLENOL INFANT'S DROPS 80MG PER, 8ML MCNEIL [Suspect]
     Indication: PYREXIA
     Dosage: EVERY 6 HOURS
     Dates: start: 20100201, end: 20100222

REACTIONS (2)
  - POOR QUALITY DRUG ADMINISTERED [None]
  - PRODUCT QUALITY ISSUE [None]
